FAERS Safety Report 5884358-2 (Version None)
Quarter: 2008Q3

REPORT INFORMATION
  Report Type: 
  Country: None (occurrence: None)
  Receive Date: 20080915
  Receipt Date: 20080903
  Transmission Date: 20090109
  Serious: Yes (Other)
  Sender: FDA-Public Use
  Company Number: US-PFIZER INC-2005151281

PATIENT
  Sex: Female

DRUGS (11)
  1. NEURONTIN [Suspect]
     Indication: BIPOLAR DISORDER
  2. TEMAZEPAM [Suspect]
  3. CLONAZEPAM [Suspect]
  4. TYLENOL W/ CODEINE NO. 3 [Suspect]
  5. OXYCONTIN [Suspect]
  6. ROBAXIN [Suspect]
  7. VICODIN [Suspect]
  8. CHLORAL HYDRATE [Suspect]
  9. EFFEXOR XR [Suspect]
  10. PAXIL [Suspect]
  11. SEROQUEL [Suspect]

REACTIONS (5)
  - COMA [None]
  - CYANOSIS [None]
  - DRUG INEFFECTIVE [None]
  - DYSPNOEA [None]
  - SUICIDE ATTEMPT [None]
